FAERS Safety Report 24235783 (Version 1)
Quarter: 2024Q3

REPORT INFORMATION
  Report Type: Spontaneous
  Country: US (occurrence: US)
  Receive Date: 20240822
  Receipt Date: 20240822
  Transmission Date: 20241017
  Serious: No
  Sender: Day One Biopharmaceuticals
  Company Number: US-DAY ONE BIOPHARMACEUTICALS, INC.-2024US000273

PATIENT
  Age: 8 Year
  Sex: Female

DRUGS (2)
  1. OJEMDA [Suspect]
     Active Substance: TOVORAFENIB
     Indication: Astrocytoma, low grade
     Dosage: 4 TABLETS PER WEEK
     Route: 048
     Dates: start: 2024
  2. OJEMDA [Suspect]
     Active Substance: TOVORAFENIB
     Indication: Brain neoplasm

REACTIONS (8)
  - Skin discolouration [Not Recovered/Not Resolved]
  - Macule [Not Recovered/Not Resolved]
  - Alopecia [Not Recovered/Not Resolved]
  - Erythema [Not Recovered/Not Resolved]
  - Hair colour changes [Not Recovered/Not Resolved]
  - Rash [Not Recovered/Not Resolved]
  - Photosensitivity reaction [Not Recovered/Not Resolved]
  - Constipation [Not Recovered/Not Resolved]
